FAERS Safety Report 15658481 (Version 6)
Quarter: 2020Q2

REPORT INFORMATION
  Report Type: Report from Study
  Country: US (occurrence: US)
  Receive Date: 20181126
  Receipt Date: 20200519
  Transmission Date: 20200713
  Serious: Yes (Hospitalization, Other)
  Sender: FDA-Public Use
  Company Number: US-ACTELION-A-NJ2018-177517

PATIENT
  Sex: Female
  Weight: 55.33 kg

DRUGS (5)
  1. OPSUMIT [Suspect]
     Active Substance: MACITENTAN
     Indication: PULMONARY ARTERIAL HYPERTENSION
     Dosage: 10 MG, QD
     Route: 048
  2. OPSUMIT [Suspect]
     Active Substance: MACITENTAN
     Dosage: UNK
     Route: 048
  3. ELIQUIS [Concomitant]
     Active Substance: APIXABAN
  4. DILTIAZEM. [Concomitant]
     Active Substance: DILTIAZEM
  5. ADCIRCA [Concomitant]
     Active Substance: TADALAFIL

REACTIONS (9)
  - Pneumonia [Unknown]
  - Dyspnoea [Not Recovered/Not Resolved]
  - Dialysis [Unknown]
  - Hypoacusis [Unknown]
  - Full blood count decreased [Unknown]
  - Transfusion [Unknown]
  - Infection [Unknown]
  - Deep vein thrombosis [Unknown]
  - Atrial fibrillation [Unknown]
